FAERS Safety Report 23091376 (Version 2)
Quarter: 2023Q4

REPORT INFORMATION
  Report Type: Report from Study
  Country: DE (occurrence: DE)
  Receive Date: 20231020
  Receipt Date: 20231026
  Transmission Date: 20240110
  Serious: Yes (Hospitalization, Other)
  Sender: FDA-Public Use
  Company Number: DE-MYLANLABS-2023M1105970

PATIENT
  Age: 70 Year
  Sex: Female

DRUGS (3)
  1. METHOTREXATE SODIUM [Suspect]
     Active Substance: METHOTREXATE SODIUM
     Indication: Rheumatoid arthritis
     Dosage: 7.5 MILLIGRAM
     Dates: start: 20220316
  2. METHOTREXATE SODIUM [Suspect]
     Active Substance: METHOTREXATE SODIUM
     Dosage: 7.5 MILLIGRAM
     Dates: start: 20221020
  3. ETANERCEPT [Suspect]
     Active Substance: ETANERCEPT
     Indication: Rheumatoid arthritis
     Dosage: 50 MILLIGRAM
     Dates: start: 201709, end: 201903

REACTIONS (3)
  - Pneumonia [Unknown]
  - Renal artery stenosis [Unknown]
  - Adrenal adenoma [Unknown]

NARRATIVE: CASE EVENT DATE: 20221101
